FAERS Safety Report 13644720 (Version 1)
Quarter: 2017Q2

REPORT INFORMATION
  Report Type: Spontaneous
  Country: US (occurrence: US)
  Receive Date: 20170612
  Receipt Date: 20170612
  Transmission Date: 20170830
  Serious: No
  Sender: FDA-Public Use
  Company Number: US-ROCHE-1354425

PATIENT
  Age: 58 Year
  Sex: Male

DRUGS (11)
  1. COREG [Concomitant]
     Active Substance: CARVEDILOL
  2. ANASTROZOLE. [Concomitant]
     Active Substance: ANASTROZOLE
  3. XELODA [Suspect]
     Active Substance: CAPECITABINE
     Indication: RENAL CYST
  4. KLONOPIN [Suspect]
     Active Substance: CLONAZEPAM
     Indication: PRODUCT USED FOR UNKNOWN INDICATION
     Route: 065
  5. TRIAMTERENE AND HYDROCHLOROTHIAZIDE [Concomitant]
     Active Substance: HYDROCHLOROTHIAZIDE\TRIAMTERENE
  6. XELODA [Suspect]
     Active Substance: CAPECITABINE
     Indication: COLON CANCER
     Route: 048
     Dates: start: 20140206
  7. LISINOPRIL. [Concomitant]
     Active Substance: LISINOPRIL
  8. TESTOSTERONE CYPIONATE. [Concomitant]
     Active Substance: TESTOSTERONE CYPIONATE
  9. PROTONIX [Concomitant]
     Active Substance: PANTOPRAZOLE SODIUM
  10. EXCEDRIN (UNITED STATES) [Concomitant]
  11. ASPIRIN. [Concomitant]
     Active Substance: ASPIRIN

REACTIONS (3)
  - Peripheral coldness [Recovered/Resolved]
  - Nausea [Recovered/Resolved]
  - Pain [Not Recovered/Not Resolved]

NARRATIVE: CASE EVENT DATE: 20140213
